FAERS Safety Report 10516440 (Version 1)
Quarter: 2014Q4

REPORT INFORMATION
  Report Type: Spontaneous
  Country: US (occurrence: None)
  Receive Date: 20141003
  Receipt Date: 20141003
  Transmission Date: 20150528
  Serious: Yes (Other)
  Sender: FDA-Public Use
  Company Number: 1320611

PATIENT
  Age: 47 Year
  Sex: Female

DRUGS (7)
  1. RALETEGRAVIR [Concomitant]
  2. PEG-INTERFERON ALFA 2A [Suspect]
     Active Substance: PEGINTERFERON ALFA-2A
     Indication: HEPATITIS C
     Dosage: SINGLE INJECTION
     Route: 058
  3. RIBAVIRIN. [Suspect]
     Active Substance: RIBAVIRIN
     Indication: HEPATITIS C
     Dosage: DOSE WEIGHT- BASED
  4. LAMIVUDINE. [Concomitant]
     Active Substance: LAMIVUDINE
  5. TELAPREVIR [Suspect]
     Active Substance: TELAPREVIR
     Indication: HEPATITIS C
     Dosage: TWO TABLETS EVERY 8 HOURLY, FOR FIRST 12 WEEKS (1 IN 1 D),UKNOWN
  6. RITONAVIR. [Concomitant]
     Active Substance: RITONAVIR
  7. ATAZANAVIR(ATAZANAVIR SULFATE) [Concomitant]

REACTIONS (1)
  - Anaemia [None]
